FAERS Safety Report 9261821 (Version 1)
Quarter: 2013Q2

REPORT INFORMATION
  Report Type: Spontaneous
  Country: US (occurrence: US)
  Receive Date: 20130429
  Receipt Date: 20130429
  Transmission Date: 20140414
  Serious: Yes (Other)
  Sender: FDA-Public Use
  Company Number: US-ELI_LILLY_AND_COMPANY-US201304005620

PATIENT
  Sex: Male

DRUGS (1)
  1. AXIRON [Suspect]
     Indication: FATIGUE
     Dosage: UNK, 1 PUMP UNDER LEFT ARM PIT DAILY FOR TWO DAYS
     Route: 061

REACTIONS (8)
  - Depressed level of consciousness [Unknown]
  - Vision blurred [Unknown]
  - Lacrimation increased [Unknown]
  - Hyperhidrosis [Unknown]
  - Dizziness [Unknown]
  - Anxiety [Unknown]
  - Headache [Unknown]
  - Off label use [Unknown]
